FAERS Safety Report 9899935 (Version 1)
Quarter: 2014Q1

REPORT INFORMATION
  Report Type: Spontaneous
  Country: US (occurrence: US)
  Receive Date: 20140214
  Receipt Date: 20140214
  Transmission Date: 20141002
  Serious: No
  Sender: FDA-Public Use
  Company Number: US-VIVUS-2013V1000823

PATIENT
  Age: 54 Year
  Sex: Female

DRUGS (2)
  1. QSYMIA 3.75MG/23MG [Suspect]
     Indication: OBESITY
     Route: 048
     Dates: start: 20130915, end: 20131001
  2. MILD DIURETIC [Concomitant]
     Indication: DIURETIC THERAPY

REACTIONS (1)
  - Nephrolithiasis [Recovered/Resolved]
